FAERS Safety Report 9807887 (Version 1)
Quarter: 2014Q1

REPORT INFORMATION
  Report Type: Report from Study
  Country: CA (occurrence: CA)
  Receive Date: 20140110
  Receipt Date: 20140110
  Transmission Date: 20141002
  Serious: Yes (Hospitalization)
  Sender: FDA-Public Use
  Company Number: CA-JNJFOC-20140102129

PATIENT
  Age: 60 Year
  Sex: Female
  Weight: 60 kg

DRUGS (6)
  1. REMICADE [Suspect]
     Indication: RHEUMATOID ARTHRITIS
     Route: 042
     Dates: start: 20090825
  2. BENADRYL [Concomitant]
     Indication: PREMEDICATION
     Route: 042
     Dates: start: 20100617
  3. ACETAMINOPHEN [Concomitant]
     Indication: PREMEDICATION
     Route: 048
     Dates: start: 20090825
  4. CLONAZEPAM [Concomitant]
     Dosage: 0.05 X 2 TABLETS
     Route: 065
  5. TEGRETOL [Concomitant]
     Route: 065
  6. TOPIRAMATE [Concomitant]
     Dosage: 1/2 TAB X 1 WEEK, THEN 1 TAB
     Route: 065

REACTIONS (2)
  - Bile duct obstruction [Recovering/Resolving]
  - Weight decreased [Recovering/Resolving]
